FAERS Safety Report 10225069 (Version 1)
Quarter: 2014Q2

REPORT INFORMATION
  Report Type: Spontaneous
  Country: US (occurrence: US)
  Receive Date: 20140609
  Receipt Date: 20140609
  Transmission Date: 20141212
  Serious: No
  Sender: FDA-Public Use
  Company Number: US-BAYER-2014-083195

PATIENT
  Age: 78 Year
  Sex: Female
  Weight: 82 kg

DRUGS (2)
  1. BAYER ASPIRIN REGIMEN REGULAR 325 MG STRENGTH [Suspect]
     Indication: ARTHRITIS
     Dosage: 3 DF, BID
     Route: 048
     Dates: start: 201405, end: 20140601
  2. ALEVE CAPLET [Suspect]
     Indication: ARTHRITIS
     Dosage: 1 DF, ONCE
     Route: 048

REACTIONS (5)
  - Abdominal discomfort [Recovered/Resolved]
  - Diarrhoea [Recovered/Resolved]
  - Drug ineffective [None]
  - Incorrect dose administered [Recovered/Resolved]
  - Abdominal discomfort [None]
